FAERS Safety Report 21383503 (Version 1)
Quarter: 2022Q3

REPORT INFORMATION
  Report Type: Spontaneous
  Country: DE (occurrence: DE)
  Receive Date: 20220927
  Receipt Date: 20220927
  Transmission Date: 20221026
  Serious: Yes (Hospitalization)
  Sender: FDA-Public Use
  Company Number: DE-ANIPHARMA-2022-DE-000138

PATIENT
  Age: 71 Year
  Sex: Male

DRUGS (9)
  1. CANDESARTAN CILEXETIL [Suspect]
     Active Substance: CANDESARTAN CILEXETIL
     Indication: Product used for unknown indication
     Dosage: DOSE TEXT: 16 MG, 1-0-0-0
     Route: 048
  2. METOPROLOL [Suspect]
     Active Substance: METOPROLOL
     Dosage: DOSE TEXT: 23.75 MG, 0-0-1-0
     Route: 048
  3. APIXABAN [Concomitant]
     Active Substance: APIXABAN
     Dosage: DOSE TEXT: 5 MG, 1-0-1-0
     Route: 048
  4. METAMIZOL [Concomitant]
     Active Substance: METAMIZOLE SODIUM
     Dosage: DOSE TEXT: 500 MG/ML, AS NEEDED, DROPS
     Route: 048
  5. PIPAMPERONE HYDROCHLORIDE [Suspect]
     Active Substance: PIPAMPERONE HYDROCHLORIDE
     Dosage: DOSE TEXT: 40 MG, 0.5-0-1-0
     Route: 048
  6. EZETIMIBE\SIMVASTATIN [Suspect]
     Active Substance: EZETIMIBE\SIMVASTATIN
     Dosage: 10/20 MG, 0-0-1-0
     Route: 048
  7. VENLAFAXINE HYDROCHLORIDE [Suspect]
     Active Substance: VENLAFAXINE HYDROCHLORIDE
     Dosage: DOSE TEXT: 75 MG, 1-0-0-0
     Route: 048
  8. TORSEMIDE [Suspect]
     Active Substance: TORSEMIDE
     Dosage: DOSE TEXT: 5 MG, 1-0-0-0
     Route: 048
  9. TAMSULOSIN [Suspect]
     Active Substance: TAMSULOSIN
     Dosage: DOSE TEXT: 0.4 MG, 0-0-1-0
     Route: 048

REACTIONS (4)
  - Urinary incontinence [Recovering/Resolving]
  - Micturition urgency [Recovering/Resolving]
  - Gait disturbance [Recovering/Resolving]
  - Micturition disorder [Recovering/Resolving]

NARRATIVE: CASE EVENT DATE: 20200121
